FAERS Safety Report 20566180 (Version 2)
Quarter: 2022Q1

REPORT INFORMATION
  Report Type: Spontaneous
  Country: CA (occurrence: CA)
  Receive Date: 20220308
  Receipt Date: 20220322
  Transmission Date: 20220423
  Serious: Yes (Other)
  Sender: FDA-Public Use
  Company Number: CA-PFIZER INC-2021035295

PATIENT
  Age: 56 Year
  Sex: Male
  Weight: 70 kg

DRUGS (10)
  1. SOMAVERT [Suspect]
     Active Substance: PEGVISOMANT
     Indication: Acromegaly
     Dosage: 20 MG 1XDAY (DIE)
     Route: 058
     Dates: start: 20200728
  2. SOMAVERT [Suspect]
     Active Substance: PEGVISOMANT
     Dosage: 10 MG, 1X/DAY
     Route: 058
     Dates: start: 20200908
  3. SOMAVERT [Suspect]
     Active Substance: PEGVISOMANT
     Dosage: 20 MG, 1X/DAY
     Route: 058
  4. SOMAVERT [Suspect]
     Active Substance: PEGVISOMANT
     Dosage: 20 MG, CYCLIC 20MG EVERY OTHER DAY
     Route: 042
  5. SOMAVERT [Suspect]
     Active Substance: PEGVISOMANT
     Dosage: 20 MG 1XDAY (DIE)
     Route: 058
  6. DOSTINEX [Concomitant]
     Active Substance: CABERGOLINE
     Dosage: 1 DF
     Route: 058
  7. DOSTINEX [Concomitant]
     Active Substance: CABERGOLINE
     Dosage: 1 DF
  8. SANDOSTATIN LAR DEPOT [Concomitant]
     Active Substance: OCTREOTIDE ACETATE
     Indication: Acromegaly
     Dosage: 30 MG, MONTHLY
     Dates: start: 201902
  9. SANDOSTATIN LAR DEPOT [Concomitant]
     Active Substance: OCTREOTIDE ACETATE
     Dosage: 20 MG EVERY 8 WEEKS
     Route: 030
  10. HYDROCHLOROTHIAZIDE\VALSARTAN [Concomitant]
     Active Substance: HYDROCHLOROTHIAZIDE\VALSARTAN
     Indication: Hypertension
     Dosage: 1 DF, DAILY
     Route: 048

REACTIONS (4)
  - Neoplasm progression [Not Recovered/Not Resolved]
  - Injection site reaction [Unknown]
  - Injection site pruritus [Unknown]
  - Incorrect route of product administration [Unknown]
